FAERS Safety Report 6206875-8 (Version None)
Quarter: 2009Q2

REPORT INFORMATION
  Report Type: 
  Country: None (occurrence: None)
  Receive Date: 20090528
  Receipt Date: 20090518
  Transmission Date: 20091009
  Serious: Yes (Hospitalization)
  Sender: FDA-Public Use
  Company Number: TR-WATSON-2009-03515

PATIENT
  Sex: Female

DRUGS (2)
  1. FLUOXETINE [Suspect]
     Indication: OBSESSIVE-COMPULSIVE DISORDER
     Dosage: MATERNAL DOSE: 20 MG, DAILY DURING 2ND AND 3RD TRIMESTER
     Route: 064
     Dates: start: 20080101
  2. DIAZEPAM [Concomitant]
     Indication: OBSESSIVE-COMPULSIVE DISORDER

REACTIONS (7)
  - DRUG WITHDRAWAL SYNDROME NEONATAL [None]
  - FEEDING DISORDER NEONATAL [None]
  - FEELING JITTERY [None]
  - HYPERTONIA [None]
  - IRRITABILITY [None]
  - OCULOGYRIC CRISIS [None]
  - VOMITING [None]
